FAERS Safety Report 7238847-9 (Version None)
Quarter: 2011Q1

REPORT INFORMATION
  Report Type: 
  Country: None (occurrence: None)
  Receive Date: 20110121
  Receipt Date: 20110111
  Transmission Date: 20110831
  Serious: Yes (Other)
  Sender: FDA-Public Use
  Company Number: PHHY2010DE79190

PATIENT
  Sex: Female
  Weight: 61 kg

DRUGS (6)
  1. CYCLOSPORINE [Concomitant]
     Dosage: UNK
  2. NAVELBINE [Concomitant]
     Dosage: DAY 1+ 8
     Dates: start: 20100308
  3. ZOLEDRONATE [Suspect]
     Indication: BONE DISORDER
     Dosage: 04 MG EVERY 04 WEEKS
     Route: 042
     Dates: start: 20090630, end: 20100809
  4. VINCRISTINE [Concomitant]
     Dosage: 42 MG 3QW
     Dates: end: 20100426
  5. TAXOL [Concomitant]
     Dosage: UNK
     Dates: start: 20100510
  6. HERCEPTIN [Concomitant]
     Dosage: UNK
     Dates: start: 20091208

REACTIONS (23)
  - NEOPLASM MALIGNANT [None]
  - SWELLING [None]
  - ASPARTATE AMINOTRANSFERASE INCREASED [None]
  - ERYTHROPENIA [None]
  - GAMMA-GLUTAMYLTRANSFERASE INCREASED [None]
  - METASTASES TO LIVER [None]
  - WEIGHT DECREASED [None]
  - BLOOD UREA INCREASED [None]
  - MUSCULOSKELETAL STIFFNESS [None]
  - INFECTION [None]
  - METASTASES TO LYMPH NODES [None]
  - GENERAL PHYSICAL HEALTH DETERIORATION [None]
  - DEPRESSION [None]
  - HAEMOGLOBIN DECREASED [None]
  - BLOOD POTASSIUM INCREASED [None]
  - OSTEONECROSIS OF JAW [None]
  - BONE LESION [None]
  - ALANINE AMINOTRANSFERASE INCREASED [None]
  - INJURY ASSOCIATED WITH DEVICE [None]
  - MOUTH ULCERATION [None]
  - METASTASES TO BONE [None]
  - ERYTHEMA [None]
  - ASTHENIA [None]
